FAERS Safety Report 8853436 (Version 1)
Quarter: 2012Q4

REPORT INFORMATION
  Report Type: 
  Country: IE (occurrence: IE)
  Receive Date: 20121022
  Receipt Date: 20121022
  Transmission Date: 20130627
  Serious: Yes (Other)
  Sender: FDA-Public Use
  Company Number: IE-GLAXOSMITHKLINE-B0825795A

PATIENT
  Age: 6 Week
  Sex: Female

DRUGS (1)
  1. ZANTAC [Suspect]
     Indication: GASTROOESOPHAGEAL REFLUX DISEASE
     Dosage: 5ML Three times per day
     Route: 048
     Dates: start: 20110622, end: 20110831

REACTIONS (6)
  - Overdose [Recovering/Resolving]
  - Vomiting [Recovering/Resolving]
  - Diarrhoea [Recovering/Resolving]
  - Crying [Recovering/Resolving]
  - Medication error [Recovering/Resolving]
  - Bilateral breast buds [Recovering/Resolving]
